FAERS Safety Report 20979789 (Version 1)
Quarter: 2022Q2

REPORT INFORMATION
  Report Type: Spontaneous
  Country: US (occurrence: US)
  Receive Date: 20220620
  Receipt Date: 20220620
  Transmission Date: 20220721
  Serious: No
  Sender: FDA-Public Use
  Company Number: US-RICONPHARMA, LLC-2022RIC000012

PATIENT

DRUGS (1)
  1. SCOPOLAMINE [Suspect]
     Active Substance: SCOPOLAMINE
     Indication: Motion sickness
     Dosage: 1 MG/ 3DAY
     Route: 065

REACTIONS (3)
  - Application site pruritus [Recovering/Resolving]
  - Rash [Recovering/Resolving]
  - Product adhesion issue [Unknown]
